FAERS Safety Report 6722842-X (Version None)
Quarter: 2010Q2

REPORT INFORMATION
  Report Type: 
  Country: None (occurrence: None)
  Receive Date: 20100512
  Receipt Date: 20100512
  Transmission Date: 20101027
  Serious: Yes (Hospitalization)
  Sender: FDA-Public Use
  Company Number: None

PATIENT
  Age: 34 Year
  Sex: Male
  Weight: 68.2 kg

DRUGS (2)
  1. OXALIPLATIN [Suspect]
     Indication: GASTRIC CANCER
     Dosage: 130/250 MG/M2 D1/D1, 8, 15 IV
     Route: 042
     Dates: start: 20100224
  2. CETUXIMAB [Suspect]
     Indication: GASTRIC CANCER
     Dosage: 850 MG/M2 D1-14 BID PO
     Route: 048
     Dates: start: 20100224

REACTIONS (5)
  - CHROMATURIA [None]
  - GASTRIC CANCER STAGE IV [None]
  - JAUNDICE CHOLESTATIC [None]
  - MALIGNANT NEOPLASM PROGRESSION [None]
  - METASTASES TO PERITONEUM [None]
